FAERS Safety Report 16093262 (Version 1)
Quarter: 2019Q1

REPORT INFORMATION
  Report Type: Spontaneous
  Country: US (occurrence: US)
  Receive Date: 20190320
  Receipt Date: 20190320
  Transmission Date: 20190418
  Serious: Yes (Hospitalization)
  Sender: FDA-Public Use
  Company Number: US-TEVA-2018-US-913869

PATIENT
  Age: 67 Year
  Sex: Female

DRUGS (1)
  1. ZOLEDRONIC ACID [Suspect]
     Active Substance: ZOLEDRONIC ACID
     Indication: PLASMA CELL MYELOMA
     Dosage: HAD BEEN STARTED ON ZOLEDRONIC ACID NINE DAYS PRIOR TO PRESENTATION.
     Route: 065

REACTIONS (2)
  - Hypocalcaemia [Recovering/Resolving]
  - Contraindicated product administered [Recovering/Resolving]
